FAERS Safety Report 10673576 (Version 1)
Quarter: 2014Q4

REPORT INFORMATION
  Report Type: Spontaneous
  Country: IT (occurrence: None)
  Receive Date: 20141222
  Receipt Date: 20141222
  Transmission Date: 20150529
  Serious: Yes (Death)
  Sender: FDA-Public Use
  Company Number: INT_00549_2014

PATIENT

DRUGS (5)
  1. FOLINIC ACID [Suspect]
     Active Substance: LEUCOVORIN
     Indication: METASTATIC GASTRIC CANCER
     Dosage: 100 MG/M2,  [DAYS 1 AND 2, IN 5% GLUCOSE OVER 2 HOURS]?
  2. PEGFILGRASTIM (PEGFILGRASTIM) [Suspect]
     Active Substance: PEGFILGRASTIM
     Indication: METASTATIC GASTRIC CANCER
     Dosage: 6 MG, [ON DAY 3] SUBCUTANEOUS)??
  3. DOCETAXEL. [Suspect]
     Active Substance: DOCETAXEL
     Indication: METASTATIC GASTRIC CANCER
     Dosage: 70 MG/M2, [DAY 1, OVER 1 HOUR] INTRAVENOUS (NOT OTHERWISE SPECIFIED)??
  4. 5-FLUOROURACIL [Suspect]
     Active Substance: FLUOROURACIL
     Indication: METASTATIC GASTRIC CANCER
     Dosage: 400 MG/M2, [ON DAYS 1 AND 2] INTRAVENOUS BOLUS), (600 MG/M2, [22-H CONTINUOUS INFUSION, DAYS 1 AND 2, EVERY 14 DAYS] INTRAVENOUS (NOT OTHERWISE SPECIFIED)?
  5. CISPLATIN (CISPLATIN) (HQ SPECIALTY) [Suspect]
     Active Substance: CISPLATIN
     Indication: METASTATIC GASTRIC CANCER
     Dosage: 60 MG/M2, [DAY 1, OVER 1 TO 3 HOURS] INTRAVENOUS (NOT OTHERWISE SPECIFIED)?
     Route: 042

REACTIONS (1)
  - Septic shock [None]
